FAERS Safety Report 6073028-6 (Version None)
Quarter: 2009Q1

REPORT INFORMATION
  Report Type: 
  Country: None (occurrence: None)
  Receive Date: 20090211
  Receipt Date: 20090210
  Transmission Date: 20090719
  Serious: Yes (Hospitalization)
  Sender: FDA-Public Use
  Company Number: US-BAYER-US-2006-010027

PATIENT
  Age: 41 Year
  Sex: Female
  Weight: 59 kg

DRUGS (6)
  1. BETASERON [Suspect]
     Indication: MULTIPLE SCLEROSIS
     Route: 058
     Dates: start: 20041209, end: 20060411
  2. HYDROCHLOROTHIAZIDE [Concomitant]
     Dosage: TOTAL DAILY DOSE: 12.5 MG
     Route: 048
  3. SOLU-MEDROL [Concomitant]
  4. LISINOPRIL [Concomitant]
     Dosage: TOTAL DAILY DOSE: 10 MG
     Route: 048
  5. DIAZEPAM [Concomitant]
     Route: 048
  6. PAXIL [Concomitant]
     Dosage: TOTAL DAILY DOSE: 30 MG
     Route: 048

REACTIONS (8)
  - CELLULITIS [None]
  - CONSTIPATION [None]
  - EOSINOPHILIC CELLULITIS [None]
  - INJECTION SITE ABSCESS [None]
  - INJECTION SITE INFLAMMATION [None]
  - INJECTION SITE SWELLING [None]
  - MYOSITIS [None]
  - PAIN [None]
